FAERS Safety Report 21558139 (Version 3)
Quarter: 2022Q4

REPORT INFORMATION
  Report Type: Spontaneous
  Country: US (occurrence: US)
  Receive Date: 20221107
  Receipt Date: 20221117
  Transmission Date: 20230113
  Serious: No
  Sender: FDA-Public Use
  Company Number: US-ELI_LILLY_AND_COMPANY-US202211001613

PATIENT
  Age: 65 Year
  Sex: Female

DRUGS (6)
  1. VERZENIO [Interacting]
     Active Substance: ABEMACICLIB
     Indication: Breast cancer female
     Dosage: 150 MG, BID
     Route: 048
  2. VERZENIO [Interacting]
     Active Substance: ABEMACICLIB
     Dosage: 100 MG, BID
     Route: 048
     Dates: start: 20220621
  3. VERZENIO [Interacting]
     Active Substance: ABEMACICLIB
     Dosage: 100 MG, BID
     Route: 048
  4. CIPRO [Interacting]
     Active Substance: CIPROFLOXACIN HYDROCHLORIDE
     Indication: Ear infection
     Dosage: 500 MG, BID
     Route: 065
  5. FLUCONAZOLE [Interacting]
     Active Substance: FLUCONAZOLE
     Indication: Ear infection
     Dosage: UNK UNK, UNKNOWN
     Route: 065
     Dates: end: 20221108
  6. AZITHROMYCIN [Suspect]
     Active Substance: AZITHROMYCIN
     Indication: Ear infection
     Dosage: UNK, UNKNOWN
     Route: 065

REACTIONS (5)
  - Drug interaction [Unknown]
  - Ear infection [Unknown]
  - Incorrect dose administered [Unknown]
  - Diarrhoea [Unknown]
  - White blood cell count decreased [Unknown]

NARRATIVE: CASE EVENT DATE: 20220904
